FAERS Safety Report 5935473-6 (Version None)
Quarter: 2008Q4

REPORT INFORMATION
  Report Type: 
  Country: None (occurrence: None)
  Receive Date: 20081030
  Receipt Date: 20081002
  Transmission Date: 20090506
  Serious: No
  Sender: FDA-Public Use
  Company Number: US-BAYER-200810423BCC

PATIENT
  Age: 15 Year
  Sex: Female
  Weight: 73 kg

DRUGS (4)
  1. ALEVE (CAPLET) [Suspect]
     Indication: INFLUENZA
     Dosage: TOTAL DAILY DOSE: 660 MG  UNIT DOSE: 220 MG
     Route: 048
     Dates: start: 20080124
  2. ALEVE (CAPLET) [Suspect]
     Dosage: UNIT DOSE: 220 MG
     Route: 048
     Dates: start: 20080123, end: 20080123
  3. BIRTH CONTROL PILLS [Concomitant]
  4. IBUPROFEN TABLETS [Concomitant]
     Indication: ARTHRALGIA

REACTIONS (5)
  - BACK PAIN [None]
  - HEADACHE [None]
  - INFLUENZA [None]
  - NAUSEA [None]
  - PAINFUL RESPIRATION [None]
